FAERS Safety Report 5868954-4 (Version None)
Quarter: 2008Q3

REPORT INFORMATION
  Report Type: 
  Country: None (occurrence: None)
  Receive Date: 20080903
  Receipt Date: 20080822
  Transmission Date: 20090109
  Serious: Yes (Hospitalization)
  Sender: FDA-Public Use
  Company Number: CH-ROCHE-582492

PATIENT
  Sex: Female

DRUGS (3)
  1. XELODA [Suspect]
     Route: 048
     Dates: start: 20080101, end: 20080101
  2. XELODA [Suspect]
     Route: 048
  3. GEMZAR [Concomitant]
     Dates: start: 20080101

REACTIONS (1)
  - ANGIOEDEMA [None]
